FAERS Safety Report 6582920-5 (Version None)
Quarter: 2010Q1

REPORT INFORMATION
  Report Type: 
  Country: None (occurrence: None)
  Receive Date: 20100216
  Receipt Date: 20100203
  Transmission Date: 20100710
  Serious: No
  Sender: FDA-Public Use
  Company Number: JP-PFIZER INC-2009244587

PATIENT
  Age: 59 Year
  Sex: Male
  Weight: 50.2 kg

DRUGS (8)
  1. SUNITINIB MALATE [Suspect]
     Indication: RENAL CELL CARCINOMA
     Dosage: 37.5 MG, 1X/DAY
     Route: 048
     Dates: start: 20090302
  2. ZOMETA [Concomitant]
     Route: 042
     Dates: end: 20090226
  3. ELCITONIN [Concomitant]
     Route: 042
     Dates: end: 20090224
  4. HUMULIN R [Concomitant]
     Route: 058
  5. PENFILL N [Concomitant]
     Route: 058
  6. BLOPRESS [Concomitant]
     Route: 048
  7. AMLODIPINE [Concomitant]
     Route: 048
  8. LASIX [Concomitant]
     Route: 048

REACTIONS (1)
  - RENAL DISORDER [None]
